FAERS Safety Report 20397991 (Version 2)
Quarter: 2022Q1

REPORT INFORMATION
  Report Type: Spontaneous
  Country: US (occurrence: US)
  Receive Date: 20220131
  Receipt Date: 20220201
  Transmission Date: 20220423
  Serious: No
  Sender: FDA-Public Use
  Company Number: US-ABBVIE-21K-163-3735851-00

PATIENT
  Age: 58 Year
  Sex: Female

DRUGS (23)
  1. HUMIRA [Suspect]
     Active Substance: ADALIMUMAB
     Indication: Crohn^s disease
     Route: 058
     Dates: start: 202011
  2. LEVOTHYROXINE SODIUM [Concomitant]
     Active Substance: LEVOTHYROXINE SODIUM
     Indication: Product used for unknown indication
  3. METOCLOPRAMIDE [Concomitant]
     Active Substance: METOCLOPRAMIDE
     Indication: Product used for unknown indication
  4. BUSPIRONE [Concomitant]
     Active Substance: BUSPIRONE HYDROCHLORIDE
     Indication: Product used for unknown indication
  5. escitalopram (NON-ABBVIE) [Concomitant]
     Indication: Product used for unknown indication
  6. Metformin (NON-ABBVIE) [Concomitant]
     Indication: Product used for unknown indication
  7. hyoscyamine (NON-ABBVIE) [Concomitant]
     Indication: Product used for unknown indication
  8. Celebrex (NON-ABBVIE) [Concomitant]
     Indication: Product used for unknown indication
  9. Pentasa (NON-ABBVIE) [Concomitant]
     Indication: Product used for unknown indication
  10. Savella (NON-ABBVIE) [Concomitant]
     Indication: Product used for unknown indication
  11. Trazadone (NON-ABBVIE) [Concomitant]
     Indication: Product used for unknown indication
  12. Ropinirole (NON-ABBVIE) [Concomitant]
     Indication: Product used for unknown indication
  13. Atorvastatin (NON-ABBVIE) [Concomitant]
     Indication: Product used for unknown indication
  14. Quetiapine (NON-ABBVIE) [Concomitant]
     Indication: Product used for unknown indication
  15. Montelukast (NON-ABBVIE) [Concomitant]
     Indication: Product used for unknown indication
  16. Amitriptyline (NON-ABBVIE) [Concomitant]
     Indication: Product used for unknown indication
  17. Fluconazole (NON-ABBVIE) [Concomitant]
     Indication: Product used for unknown indication
  18. Ozempic (NON-ABBVIE) [Concomitant]
     Indication: Product used for unknown indication
  19. Promethazine (NON-ABBVIE) [Concomitant]
     Indication: Product used for unknown indication
  20. Ondansetron (NON-ABBVIE) [Concomitant]
     Indication: Product used for unknown indication
  21. Albuterol (NON-ABBVIE) [Concomitant]
     Indication: Product used for unknown indication
  22. Ventolin HFA (NON-ABBVIE) [Concomitant]
     Indication: Product used for unknown indication
  23. Buprenorphine Patch (NON-ABBVIE) [Concomitant]
     Indication: Product used for unknown indication

REACTIONS (1)
  - Amphetamines positive [Not Recovered/Not Resolved]

NARRATIVE: CASE EVENT DATE: 20210108
